FAERS Safety Report 12998542 (Version 1)
Quarter: 2016Q4

REPORT INFORMATION
  Report Type: Spontaneous
  Country: US (occurrence: US)
  Receive Date: 20161205
  Receipt Date: 20161205
  Transmission Date: 20170207
  Serious: Yes (Death, Other)
  Sender: FDA-Public Use
  Company Number: US-009507513-1612USA001885

PATIENT
  Age: 33 Year
  Sex: Male

DRUGS (1)
  1. PROPECIA [Suspect]
     Active Substance: FINASTERIDE
     Indication: ALOPECIA
     Route: 048

REACTIONS (6)
  - Completed suicide [Fatal]
  - Insomnia [Unknown]
  - Genital atrophy [Unknown]
  - Feeling abnormal [Unknown]
  - Genital hypoaesthesia [Unknown]
  - Loss of libido [Unknown]

NARRATIVE: CASE EVENT DATE: 20160119
